FAERS Safety Report 10935462 (Version 2)
Quarter: 2015Q2

REPORT INFORMATION
  Report Type: Spontaneous
  Country: US (occurrence: US)
  Receive Date: 20150320
  Receipt Date: 20150519
  Transmission Date: 20150821
  Serious: Yes (Other)
  Sender: FDA-Public Use
  Company Number: US-GLAXOSMITHKLINE-US2015036151

PATIENT
  Sex: Female

DRUGS (12)
  1. SOMA [Concomitant]
     Active Substance: CARISOPRODOL
  2. TRAMADOL [Concomitant]
     Active Substance: TRAMADOL
  3. HYCODAN SYRUP [Concomitant]
  4. VENTOLIN HFA [Suspect]
     Active Substance: ALBUTEROL SULFATE
  5. DIAZEPAM. [Concomitant]
     Active Substance: DIAZEPAM
  6. HYDROCHLOROTHIAZIDE. [Concomitant]
     Active Substance: HYDROCHLOROTHIAZIDE
  7. TESSALON [Concomitant]
     Active Substance: BENZONATATE
  8. VENTOLIN [Suspect]
     Active Substance: ALBUTEROL SULFATE
     Indication: COUGH
     Dosage: UNK, PRN
     Route: 055
  9. VENTOLIN [Suspect]
     Active Substance: ALBUTEROL SULFATE
     Indication: MULTIPLE ALLERGIES
  10. CLARITIN [Concomitant]
     Active Substance: LORATADINE
  11. BUSPAR [Concomitant]
     Active Substance: BUSPIRONE HYDROCHLORIDE
  12. PHRENILIN [Concomitant]
     Active Substance: ACETAMINOPHEN\BUTALBITAL\CAFFEINE\CODEINE PHOSPHATE

REACTIONS (8)
  - Gallbladder operation [Recovered/Resolved]
  - Device misuse [Unknown]
  - Cough [Not Recovered/Not Resolved]
  - Throat irritation [Not Recovered/Not Resolved]
  - Bronchitis [Unknown]
  - Burning sensation [Unknown]
  - Device use error [Unknown]
  - Drug ineffective [Unknown]

NARRATIVE: CASE EVENT DATE: 2013
